FAERS Safety Report 6204769-5 (Version None)
Quarter: 2009Q2

REPORT INFORMATION
  Report Type: 
  Country: None (occurrence: None)
  Receive Date: 20090522
  Receipt Date: 20090504
  Transmission Date: 20091009
  Serious: Yes (Hospitalization)
  Sender: FDA-Public Use
  Company Number: US021368

PATIENT
  Age: 47 Year
  Sex: Male
  Weight: 82 kg

DRUGS (2)
  1. PROVIGIL [Suspect]
     Indication: DRUG DEPENDENCE
     Dosage: 400 MG (400 MG, 1 IN 1 D), ORAL
     Route: 048
     Dates: start: 20070622, end: 20070703
  2. PROVIGIL [Suspect]
     Indication: DRUG DEPENDENCE
     Dosage: 400 MG (400 MG, 1 IN 1 D), ORAL
     Route: 048
     Dates: end: 20070830

REACTIONS (8)
  - CELLULITIS [None]
  - CULTURE WOUND POSITIVE [None]
  - DRUG SCREEN POSITIVE [None]
  - ECHOCARDIOGRAM ABNORMAL [None]
  - INJECTION SITE ABSCESS [None]
  - KLEBSIELLA INFECTION [None]
  - SUBCUTANEOUS ABSCESS [None]
  - WOUND INFECTION BACTERIAL [None]
